FAERS Safety Report 7070899-1 (Version None)
Quarter: 2010Q4

REPORT INFORMATION
  Report Type: 
  Country: None (occurrence: None)
  Receive Date: 20101029
  Receipt Date: 20101025
  Transmission Date: 20110411
  Serious: Yes (Other)
  Sender: FDA-Public Use
  Company Number: US-PFIZER INC-2010098620

PATIENT
  Sex: Male

DRUGS (11)
  1. SUTENT [Suspect]
     Indication: METASTATIC RENAL CELL CARCINOMA
     Dosage: 50 MG, 1X/DAY
     Route: 048
     Dates: start: 20100723, end: 20100814
  2. TESTODERM ^ALZA^ [Concomitant]
     Dosage: EVERY 1 MINUTES, MONTHLY
     Route: 030
     Dates: start: 20091116
  3. AVODART [Concomitant]
     Dosage: 0.05 MG, 1X/DAY
     Route: 048
     Dates: start: 20090810
  4. CYMBALTA [Concomitant]
     Dosage: 60 MG, 1X/DAY
     Route: 048
     Dates: start: 20090810
  5. FLOMAX [Concomitant]
     Dosage: 0.4 MG, 1X/DAY
     Route: 048
     Dates: start: 20090810
  6. PLAQUENIL [Concomitant]
     Dosage: 200 MG, 1X/DAY
     Route: 048
     Dates: start: 20090810
  7. NEBIVOLOL [Concomitant]
     Dosage: 10 MG, 1X/DAY
     Route: 048
     Dates: start: 20090810
  8. PYRIDOXINE [Concomitant]
     Dosage: 100 MG, 1X/DAY
     Route: 048
     Dates: start: 20090810
  9. FOLIC ACID [Concomitant]
     Dosage: 800 UG, 1X/DAY
     Route: 048
     Dates: start: 20090810
  10. ACETYLSALICYLIC ACID [Concomitant]
     Dosage: 81 MG, 1X/DAY
     Route: 048
     Dates: start: 20090810
  11. ASCORBIC ACID [Concomitant]
     Dosage: 5000 MG, 1X/DAY
     Route: 048
     Dates: start: 20090810

REACTIONS (3)
  - ASTHMA [None]
  - HEART RATE IRREGULAR [None]
  - PLATELET COUNT DECREASED [None]
